FAERS Safety Report 16342772 (Version 2)
Quarter: 2019Q3

REPORT INFORMATION
  Report Type: Report from Study
  Country: US (occurrence: US)
  Receive Date: 20190522
  Receipt Date: 20190703
  Transmission Date: 20191004
  Serious: Yes (Other)
  Sender: FDA-Public Use
  Company Number: US-INCYTE CORPORATION-2019IN004901

PATIENT

DRUGS (1)
  1. JAKAFI [Suspect]
     Active Substance: RUXOLITINIB
     Indication: MYELOFIBROSIS
     Dosage: 15 MILLIGRAM, BID
     Route: 048
     Dates: start: 20190426

REACTIONS (7)
  - White blood cell count abnormal [Unknown]
  - Haemoglobin decreased [Unknown]
  - Wound [Recovering/Resolving]
  - Platelet count decreased [Unknown]
  - Haemorrhagic diathesis [Recovering/Resolving]
  - Haematocrit abnormal [Unknown]
  - Cough [Unknown]
